FAERS Safety Report 24299907 (Version 1)
Quarter: 2024Q3

REPORT INFORMATION
  Report Type: Spontaneous
  Country: DE (occurrence: DE)
  Receive Date: 20240909
  Receipt Date: 20240909
  Transmission Date: 20241016
  Serious: Yes (Other)
  Sender: TEVA
  Company Number: DE-TEVA-VS-3239953

PATIENT
  Sex: Female

DRUGS (2)
  1. LISDEXAMFETAMINE [Suspect]
     Active Substance: LISDEXAMFETAMINE
     Indication: Product used for unknown indication
     Dosage: LISDEXAMFETAMIN-RATIOPHARM ERWACHSENE 50 MG HARTKAPSELN, FOR 2-3 DAYS
     Route: 065
     Dates: start: 2024, end: 2024
  2. METHYLPHENIDATE [Concomitant]
     Active Substance: METHYLPHENIDATE
     Indication: Attention deficit hyperactivity disorder
     Route: 065

REACTIONS (4)
  - Toxicity to various agents [Unknown]
  - Drug ineffective [Unknown]
  - Hepatomegaly [Unknown]
  - Adverse event [Unknown]

NARRATIVE: CASE EVENT DATE: 20240101
